FAERS Safety Report 9472704 (Version 2)
Quarter: 2013Q3

REPORT INFORMATION
  Report Type: Spontaneous
  Country: FR (occurrence: FR)
  Receive Date: 20130823
  Receipt Date: 20130911
  Transmission Date: 20140515
  Serious: Yes (Other)
  Sender: FDA-Public Use
  Company Number: FR-SANOFI-AVENTIS-2013SA083903

PATIENT
  Sex: Male

DRUGS (1)
  1. LOVENOX [Suspect]
     Indication: ACCIDENTAL EXPOSURE TO PRODUCT
     Route: 058
     Dates: start: 20130816, end: 20130816

REACTIONS (1)
  - Injury associated with device [Unknown]
